FAERS Safety Report 15237750 (Version 2)
Quarter: 2019Q1

REPORT INFORMATION
  Report Type: Spontaneous
  Country: BG (occurrence: BG)
  Receive Date: 20180803
  Receipt Date: 20190311
  Transmission Date: 20190417
  Serious: Yes (Hospitalization, Other)
  Sender: FDA-Public Use
  Company Number: BG-TEVA-2018-BG-938370

PATIENT
  Age: 4 Decade
  Sex: Male

DRUGS (2)
  1. ASPIRIN. [Suspect]
     Active Substance: ASPIRIN
     Indication: HYPERTENSION
     Dosage: 100 MILLIGRAM DAILY; IN THE EVENING?SINCE THE PAST 1.5-2 YEARS
     Route: 065
  2. IRBESARTAN W/HYDROCHLOROTHIAZIDE [Suspect]
     Active Substance: HYDROCHLOROTHIAZIDE\IRBESARTAN
     Indication: HYPERTENSION
     Dosage: 150 MG IRBESARTAN /12.5 MG HYDROCHLOROTHIAZIDE, ONCE DAILY IN THE MORNING?SINCE THE PAST 1.5-2 YEARS
     Route: 065

REACTIONS (2)
  - Malignant melanoma stage I [Unknown]
  - Psoriasis [Unknown]
